FAERS Safety Report 5592489-X (Version None)
Quarter: 2008Q1

REPORT INFORMATION
  Report Type: 
  Country: None (occurrence: None)
  Receive Date: 20080111
  Receipt Date: 20080108
  Transmission Date: 20080703
  Serious: Yes (Hospitalization)
  Sender: FDA-Public Use
  Company Number: 2007SP025349

PATIENT
  Age: 49 Year
  Sex: Female
  Weight: 58.3 kg

DRUGS (1)
  1. TEMODAR [Suspect]
     Indication: GLIOBLASTOMA MULTIFORME
     Dosage: 75 MG/M2', QD,
     Dates: start: 20071210, end: 20071216

REACTIONS (6)
  - DIZZINESS [None]
  - ENCEPHALOPATHY [None]
  - HEADACHE [None]
  - HEMIPARESIS [None]
  - NAUSEA [None]
  - VOMITING [None]
